FAERS Safety Report 25732495 (Version 1)
Quarter: 2025Q3

REPORT INFORMATION
  Report Type: Spontaneous
  Country: EU (occurrence: EU)
  Receive Date: 20250827
  Receipt Date: 20250827
  Transmission Date: 20251021
  Serious: Yes (Other)
  Sender: PURDUE
  Company Number: EU-NAPPMUNDI-GBR-2025-0128308

PATIENT

DRUGS (1)
  1. MORPHINE SULFATE [Suspect]
     Active Substance: MORPHINE SULFATE
     Indication: Pain
     Route: 065

REACTIONS (4)
  - Arrhythmia [Unknown]
  - Fracture [Unknown]
  - Fall [Unknown]
  - Constipation [Unknown]
